FAERS Safety Report 8215122-7 (Version None)
Quarter: 2012Q1

REPORT INFORMATION
  Report Type: 
  Country: None (occurrence: None)
  Receive Date: 20120316
  Receipt Date: 20120312
  Transmission Date: 20120608
  Serious: Yes (Hospitalization, Other)
  Sender: FDA-Public Use
  Company Number: US-PFIZER INC-2011315756

PATIENT
  Sex: Male

DRUGS (10)
  1. ACETYLSALICYLIC ACID [Concomitant]
     Dosage: 81 MG, 1X/DAY (EVERY DAY, ON AT INTAKE)
     Route: 048
     Dates: start: 20111017
  2. LEVOTHYROXINE [Concomitant]
     Dosage: 75 UG, 1X/DAY
     Route: 048
     Dates: start: 20120110
  3. PANTOPRAZOLE [Concomitant]
     Dosage: 40 MG, 1X/DAY
     Route: 048
     Dates: start: 20120110
  4. SUTENT [Suspect]
     Indication: RENAL CELL CARCINOMA
     Dosage: 50 MG, 1X/DAY, 4 WEEKS ON/2 WEEKS OFF
     Route: 048
     Dates: start: 20111115, end: 20111201
  5. ZOLPIDEM [Concomitant]
     Dosage: 5 MG (ON AT INTAKE, 1/2 TAB OF 10 MG)
     Route: 048
     Dates: start: 20111017
  6. ATENOLOL [Concomitant]
     Dosage: 25 MG, 1X/DAY
     Route: 048
     Dates: start: 20120110
  7. ACETYLSALICYLIC ACID [Concomitant]
     Dosage: 81 MG, 1X/DAY
     Route: 048
     Dates: start: 20120110
  8. OXYCODONE HCL AND ACETAMINOPHEN [Concomitant]
     Dosage: 5/325 DOSE, EVERY 4 HOURS, AS NEEDED
     Route: 048
     Dates: start: 20120110
  9. SUTENT [Suspect]
     Dosage: 25 MG, 1X/DAY
     Route: 048
     Dates: start: 20120110
  10. ASCORBIC ACID [Concomitant]
     Dosage: 1 TABLET, ON AT INTAKE
     Route: 048
     Dates: start: 20111017

REACTIONS (7)
  - PYREXIA [None]
  - DIARRHOEA [None]
  - BONE PAIN [None]
  - MALAISE [None]
  - MYALGIA [None]
  - ARTHRALGIA [None]
  - CHILLS [None]
